FAERS Safety Report 4568680-8 (Version None)
Quarter: 2005Q1

REPORT INFORMATION
  Report Type: 
  Country: None (occurrence: None)
  Receive Date: 20050202
  Receipt Date: 20050128
  Transmission Date: 20050727
  Serious: Yes (Other)
  Sender: FDA-Public Use
  Company Number: US-MERCK-0501USA04548

PATIENT
  Age: 59 Year
  Sex: Female

DRUGS (4)
  1. FOSAMAX [Suspect]
     Indication: OSTEOPOROSIS PROPHYLAXIS
     Route: 048
     Dates: start: 20041022, end: 20050128
  2. LAMICTAL [Concomitant]
     Route: 065
  3. KLONOPIN [Concomitant]
     Route: 065
  4. TEGRETOL-XR [Concomitant]
     Route: 065

REACTIONS (1)
  - CONVULSION [None]
